FAERS Safety Report 7414803-2 (Version None)
Quarter: 2011Q2

REPORT INFORMATION
  Report Type: 
  Country: None (occurrence: None)
  Receive Date: 20110414
  Receipt Date: 20100830
  Transmission Date: 20111010
  Serious: No
  Sender: FDA-Public Use
  Company Number: A0878384A

PATIENT
  Sex: Female

DRUGS (1)
  1. LUXIQ [Suspect]
     Route: 061

REACTIONS (2)
  - DERMATITIS [None]
  - PRODUCT QUALITY ISSUE [None]
